FAERS Safety Report 4614170-3 (Version None)
Quarter: 2005Q1

REPORT INFORMATION
  Report Type: 
  Country: None (occurrence: None)
  Receive Date: 20050315
  Receipt Date: 20050304
  Transmission Date: 20050727
  Serious: Yes (Other)
  Sender: FDA-Public Use
  Company Number: 2005042017

PATIENT
  Sex: Female

DRUGS (5)
  1. NEURONTIN [Suspect]
     Indication: PAIN
     Dosage: 200 MG (200 MG, 1 IN 1 D), ORAL
     Route: 048
  2. TRAZODONE (TRAZODONE) [Concomitant]
  3. CLONAZEPAM [Concomitant]
  4. MORPHINE [Concomitant]
  5. ALL OTHER THERAPEUTIC PRODUCTS [Concomitant]

REACTIONS (4)
  - BACK PAIN [None]
  - INITIAL INSOMNIA [None]
  - INTERVERTEBRAL DISC DEGENERATION [None]
  - SPINAL DISORDER [None]
